FAERS Safety Report 8030447-6 (Version None)
Quarter: 2012Q1

REPORT INFORMATION
  Report Type: 
  Country: None (occurrence: None)
  Receive Date: 20120109
  Receipt Date: 20120105
  Transmission Date: 20120608
  Serious: Yes (Death)
  Sender: FDA-Public Use
  Company Number: PHHY2011FR111528

PATIENT
  Sex: Male

DRUGS (4)
  1. EXJADE [Suspect]
     Indication: IRON OVERLOAD
  2. EXJADE [Suspect]
     Indication: HAEMOCHROMATOSIS
     Dosage: 1500 MG DAILY
     Route: 048
  3. CORDARONE [Concomitant]
     Indication: ARRHYTHMIA
     Dosage: 1 DF DAILY
  4. LASIX [Concomitant]
     Indication: CARDIAC FAILURE
     Dosage: 400 MG DAILY
     Dates: start: 20080201

REACTIONS (1)
  - DEATH [None]
